FAERS Safety Report 8091120-1 (Version None)
Quarter: 2012Q1

REPORT INFORMATION
  Report Type: 
  Country: None (occurrence: None)
  Receive Date: 20120129
  Receipt Date: 20111025
  Transmission Date: 20120608
  Serious: No
  Sender: FDA-Public Use
  Company Number: US-ABBOTT-11P-163-0868076-00

PATIENT
  Age: 28 Year
  Sex: Male

DRUGS (2)
  1. PENTASA [Concomitant]
     Indication: PRODUCT USED FOR UNKNOWN INDICATION
     Dosage: 1000 MG DAILY
  2. HUMIRA [Suspect]
     Indication: CROHN'S DISEASE
     Dates: start: 20110701

REACTIONS (4)
  - OROPHARYNGEAL PAIN [None]
  - NASOPHARYNGITIS [None]
  - PYREXIA [None]
  - CONJUNCTIVITIS [None]
